FAERS Safety Report 24022543 (Version 1)
Quarter: 2024Q2

REPORT INFORMATION
  Report Type: Report from Study
  Country: US (occurrence: US)
  Receive Date: 20240627
  Receipt Date: 20240627
  Transmission Date: 20240716
  Serious: No
  Sender: FDA-Public Use
  Company Number: US-ROCHE-3432021

PATIENT
  Age: 70 Year
  Sex: Male
  Weight: 90.4 kg

DRUGS (4)
  1. ALECENSA [Suspect]
     Active Substance: ALECTINIB HYDROCHLORIDE
     Indication: Retroperitoneal cancer
     Dosage: FREQUENCY TEXT:TAKE 4 BID WITH AM AND PM MEALS
     Route: 048
  2. ALECENSA [Suspect]
     Active Substance: ALECTINIB HYDROCHLORIDE
     Indication: Lung neoplasm malignant
  3. ALECENSA [Suspect]
     Active Substance: ALECTINIB HYDROCHLORIDE
     Indication: Metastases to peritoneum
  4. XALKORI [Concomitant]
     Active Substance: CRIZOTINIB

REACTIONS (1)
  - Bradycardia [Unknown]
